FAERS Safety Report 5123832-3 (Version None)
Quarter: 2006Q4

REPORT INFORMATION
  Report Type: 
  Country: None (occurrence: None)
  Receive Date: 20061010
  Receipt Date: 20061005
  Transmission Date: 20070319
  Serious: Yes (Other)
  Sender: FDA-Public Use
  Company Number: US-GLAXOSMITHKLINE-A0622641A

PATIENT
  Sex: Male

DRUGS (3)
  1. DEXEDRINE [Suspect]
     Route: 048
  2. DEXEDRINE [Suspect]
     Route: 048
  3. NO CONCURRENT MEDICATION [Concomitant]

REACTIONS (4)
  - CONSCIOUSNESS FLUCTUATING [None]
  - DISTURBANCE IN ATTENTION [None]
  - DRUG INEFFECTIVE [None]
  - MENTAL IMPAIRMENT [None]
